FAERS Safety Report 8980755 (Version 2)
Quarter: 2013Q1

REPORT INFORMATION
  Report Type: Spontaneous
  Country: JP (occurrence: JP)
  Receive Date: 20121221
  Receipt Date: 20130131
  Transmission Date: 20140127
  Serious: Yes (Death, Hospitalization)
  Sender: FDA-Public Use
  Company Number: JP-PFIZER INC-2012319402

PATIENT
  Age: 65 Year
  Sex: Female
  Weight: 44 kg

DRUGS (6)
  1. FARMORUBICIN [Suspect]
     Indication: BREAST CANCER METASTATIC
     Dosage: 110.92 MG, 1X/DAY
     Route: 042
     Dates: start: 20120802, end: 20121010
  2. ENDOXAN [Suspect]
     Indication: BREAST CANCER METASTATIC
     Dosage: 887.4 MG, 1X/DAY
     Route: 042
     Dates: start: 20120802, end: 20121010
  3. ZOMETA [Concomitant]
     Indication: BREAST CANCER METASTATIC
     Dosage: 4 MG, 1X/DAY
     Route: 042
     Dates: start: 20101124, end: 20121205
  4. ALOXI [Concomitant]
     Indication: BREAST CANCER METASTATIC
     Dosage: 0.75 MG, 1X/DAY
     Route: 042
     Dates: start: 20120802, end: 20121010
  5. DECADRON [Concomitant]
     Indication: BREAST CANCER METASTATIC
     Dosage: 9.9 MG, 1X/DAY
     Route: 042
     Dates: start: 20120802, end: 20121010
  6. MAXIPIME [Concomitant]
     Indication: INFECTION
     Dosage: 1 G, 2X/DAY
     Route: 042
     Dates: start: 20121023, end: 20121026

REACTIONS (3)
  - Liver disorder [Fatal]
  - Jaundice [Fatal]
  - Hepatic failure [Fatal]
